FAERS Safety Report 5120409-0 (Version None)
Quarter: 2006Q4

REPORT INFORMATION
  Report Type: 
  Country: None (occurrence: None)
  Receive Date: 20061004
  Receipt Date: 20060828
  Transmission Date: 20070319
  Serious: Yes (Hospitalization)
  Sender: FDA-Public Use
  Company Number: FR-GLAXOSMITHKLINE-B0435769A

PATIENT
  Age: 49 Year
  Sex: Female

DRUGS (5)
  1. ZOFRAN [Suspect]
     Dosage: 16MG PER DAY
     Route: 042
     Dates: start: 20060707, end: 20060713
  2. RANIPLEX [Suspect]
     Dosage: 100MG PER DAY
     Route: 042
     Dates: start: 20060707, end: 20060713
  3. POLARAMINE [Suspect]
     Dosage: 10MG PER DAY
     Route: 042
     Dates: start: 20060707, end: 20060713
  4. PACLITAXEL [Suspect]
     Indication: CHEMOTHERAPY
     Dosage: 250MG PER DAY
     Route: 042
     Dates: start: 20060707, end: 20060713
  5. SOLU-MEDROL [Suspect]
     Dosage: 120MG PER DAY
     Route: 042
     Dates: start: 20060707, end: 20060713

REACTIONS (2)
  - NEUTROPENIA [None]
  - RASH ERYTHEMATOUS [None]
